FAERS Safety Report 5796538-5 (Version None)
Quarter: 2008Q3

REPORT INFORMATION
  Report Type: 
  Country: None (occurrence: None)
  Receive Date: 20080701
  Receipt Date: 20080630
  Transmission Date: 20090109
  Serious: Yes (Other)
  Sender: FDA-Public Use
  Company Number: CH-BRISTOL-MYERS SQUIBB COMPANY-14245310

PATIENT
  Age: 78 Year
  Sex: Female

DRUGS (5)
  1. KENACORT-A40 INJ [Suspect]
     Indication: SPINAL COLUMN STENOSIS
     Dosage: SECOND INFUSION IS ON 15MAR08
     Route: 037
     Dates: start: 20080215
  2. NAROPIN [Suspect]
     Indication: SPINAL COLUMN STENOSIS
     Route: 037
     Dates: start: 20080215
  3. BONIVA [Concomitant]
     Route: 042
     Dates: start: 20070101
  4. CALCIMAGON [Concomitant]
     Route: 048
     Dates: start: 19800101
  5. VITAMIN E [Concomitant]
     Dosage: 1 DOSAGE FORM = 100 IE/G

REACTIONS (1)
  - FAECAL INCONTINENCE [None]
